FAERS Safety Report 4392321-6 (Version None)
Quarter: 2004Q3

REPORT INFORMATION
  Report Type: 
  Country: None (occurrence: None)
  Receive Date: 20040701
  Receipt Date: 20040622
  Transmission Date: 20050211
  Serious: Yes (Hospitalization)
  Sender: FDA-Public Use
  Company Number: 2004UW13140

PATIENT
  Age: 39 Year
  Sex: Female

DRUGS (1)
  1. SEROQUEL [Suspect]
     Dosage: 900 MG HS PO
     Route: 048

REACTIONS (3)
  - AMNESIA [None]
  - SENSORY LOSS [None]
  - TARDIVE DYSKINESIA [None]
